FAERS Safety Report 24713864 (Version 1)
Quarter: 2024Q4

REPORT INFORMATION
  Report Type: Spontaneous
  Country: US (occurrence: US)
  Receive Date: 20241209
  Receipt Date: 20241209
  Transmission Date: 20250115
  Serious: No
  Sender: REGENERON
  Company Number: US-REGENERON PHARMACEUTICALS, INC.-2024-067922

PATIENT
  Sex: Male

DRUGS (2)
  1. EYLEA [Suspect]
     Active Substance: AFLIBERCEPT
     Indication: Neovascular age-related macular degeneration
     Dosage: 2 MG, Q6W, 2 MG/0.05 ML, SINGLE-DOSE PF SYRINGE-GERRESHEIMER, OTHER EYE; (TREATMENT BOTH EYES)
     Route: 031
     Dates: end: 20240202
  2. EYLEA [Suspect]
     Active Substance: AFLIBERCEPT
     Dosage: 2 MG, Q6W, 2 MG/0.05 ML, SINGLE-DOSE PRE-FILLED GLASS SYRINGE- GERRESHEIMER, ONE EYE;
     Route: 031

REACTIONS (1)
  - Drug ineffective [Unknown]
